FAERS Safety Report 7897176-0 (Version None)
Quarter: 2011Q4

REPORT INFORMATION
  Report Type: 
  Country: None (occurrence: None)
  Receive Date: 20111107
  Receipt Date: 20111024
  Transmission Date: 20120403
  Serious: Yes (Other)
  Sender: FDA-Public Use
  Company Number: US-ELI_LILLY_AND_COMPANY-US201110006761

PATIENT
  Sex: Male

DRUGS (10)
  1. ZYPREXA [Suspect]
     Dosage: 2.5 MG, QD
     Dates: start: 20031201
  2. ZYPREXA [Suspect]
     Dosage: 10 MG, QD
  3. PROAIR HFA [Concomitant]
  4. ZYPREXA [Suspect]
     Dosage: 20 MG, UNK
     Dates: end: 20090101
  5. ADVAIR DISKUS 100/50 [Concomitant]
  6. SEROQUEL [Concomitant]
  7. SINGULAIR [Concomitant]
  8. ZYPREXA [Suspect]
     Indication: BIPOLAR DISORDER
     Dosage: UNK
     Dates: start: 19990101
  9. LITHIUM CITRATE [Concomitant]
  10. ALBUTEROL [Concomitant]

REACTIONS (8)
  - IDIOPATHIC THROMBOCYTOPENIC PURPURA [None]
  - DYSPNOEA [None]
  - INCREASED APPETITE [None]
  - MEMORY IMPAIRMENT [None]
  - CHEST PAIN [None]
  - WEIGHT INCREASED [None]
  - OEDEMA PERIPHERAL [None]
  - CEREBROVASCULAR ACCIDENT [None]
